FAERS Safety Report 5066779-3 (Version None)
Quarter: 2006Q3

REPORT INFORMATION
  Report Type: 
  Country: None (occurrence: None)
  Receive Date: 20060801
  Receipt Date: 20060720
  Transmission Date: 20061208
  Serious: Yes (Death)
  Sender: FDA-Public Use
  Company Number: HU-ROCHE-456392

PATIENT
  Age: 21 Year
  Sex: Male

DRUGS (2)
  1. ROACCUTAN [Suspect]
     Indication: ACNE
     Route: 048
  2. ANTIDEPRESSANT NOS [Concomitant]

REACTIONS (1)
  - COMPLETED SUICIDE [None]
